FAERS Safety Report 9517753 (Version 1)
Quarter: 2013Q3

REPORT INFORMATION
  Report Type: Spontaneous
  Country: US (occurrence: US)
  Receive Date: 20130912
  Receipt Date: 20130912
  Transmission Date: 20140515
  Serious: No
  Sender: FDA-Public Use
  Company Number: US-BIOGENIDEC-2013BI085104

PATIENT
  Sex: Female

DRUGS (2)
  1. TYSABRI [Suspect]
     Indication: MULTIPLE SCLEROSIS
     Route: 042
     Dates: start: 20081027, end: 20110221
  2. TYSABRI [Suspect]
     Indication: MULTIPLE SCLEROSIS
     Route: 042
     Dates: start: 20120705

REACTIONS (4)
  - Weight decreased [Not Recovered/Not Resolved]
  - Memory impairment [Not Recovered/Not Resolved]
  - Abdominal discomfort [Unknown]
  - Decreased appetite [Unknown]
